FAERS Safety Report 5728146-6 (Version None)
Quarter: 2008Q2

REPORT INFORMATION
  Report Type: 
  Country: None (occurrence: None)
  Receive Date: 20080505
  Receipt Date: 20080423
  Transmission Date: 20081010
  Serious: Yes (Hospitalization)
  Sender: FDA-Public Use
  Company Number: US-MERCK-0804USA04966

PATIENT
  Age: 14 Year
  Sex: Female

DRUGS (2)
  1. SINGULAIR [Suspect]
     Indication: HYPERSENSITIVITY
     Route: 048
     Dates: start: 20080416, end: 20080417
  2. ADVAIR HFA [Concomitant]
     Route: 065

REACTIONS (6)
  - BACK PAIN [None]
  - DIZZINESS [None]
  - HEADACHE [None]
  - NECK PAIN [None]
  - PYREXIA [None]
  - TREMOR [None]
